FAERS Safety Report 4745789-7 (Version None)
Quarter: 2005Q3

REPORT INFORMATION
  Report Type: 
  Country: None (occurrence: None)
  Receive Date: 20050815
  Receipt Date: 20050815
  Transmission Date: 20060218
  Serious: Yes (Life-Threatening)
  Sender: FDA-Public Use
  Company Number: None

PATIENT
  Sex: Male
  Weight: 57.5161 kg

DRUGS (2)
  1. QUETIAPINE FUMARATE [Suspect]
     Indication: SCHIZOPHRENIA, PARANOID TYPE
     Dosage: 400MG  QAM   ORAL
     Route: 048
     Dates: start: 20050323, end: 20050716
  2. QUETIAPINE FUMARATE [Suspect]
     Dosage: 500MG  QHS  ORAL
     Route: 048
     Dates: start: 20050323, end: 20050716

REACTIONS (6)
  - CONFUSIONAL STATE [None]
  - GAIT DISTURBANCE [None]
  - LETHARGY [None]
  - POLLAKIURIA [None]
  - SLUGGISHNESS [None]
  - THIRST [None]
